FAERS Safety Report 10056459 (Version 1)
Quarter: 2014Q2

REPORT INFORMATION
  Report Type: Spontaneous
  Country: GB (occurrence: None)
  Receive Date: 20140401
  Receipt Date: 20140401
  Transmission Date: 20141212
  Serious: Yes (Life-Threatening, Hospitalization)
  Sender: FDA-Public Use
  Company Number: AUR-APL-2014-03891

PATIENT
  Age: 83 Year
  Sex: Male

DRUGS (10)
  1. CLOPIDOGREL [Suspect]
     Indication: STENT PLACEMENT
     Route: 048
     Dates: start: 2012, end: 201401
  2. WARFARIN (WARFARIN) [Suspect]
     Indication: ATRIAL FIBRILLATION
     Dates: end: 201312
  3. ASPIRIN (ACETYLSALICYLIC ACID) [Concomitant]
  4. ATORVASTATIN (ATORVASTATIN) [Concomitant]
  5. BISOPROLOL (BISOPROLOL) [Concomitant]
  6. DIGOXIN (DIGOXIN) [Concomitant]
  7. FUROSEMIDE (FUROSEMIDE) [Concomitant]
  8. PERINDOPRIL (PERINDOPRIL) [Concomitant]
  9. RANITIDINE (RANITIDINE) [Concomitant]
  10. SPIRONOLACTONE (SPIRONOLACTONE) [Concomitant]

REACTIONS (9)
  - Acquired haemophilia [None]
  - Splenic rupture [None]
  - Retroperitoneal haematoma [None]
  - Haemarthrosis [None]
  - Fall [None]
  - Haematuria [None]
  - Cardiac failure chronic [None]
  - Contusion [None]
  - Wound haemorrhage [None]
